FAERS Safety Report 23725227 (Version 1)
Quarter: 2024Q2

REPORT INFORMATION
  Report Type: Report from Study
  Country: ZA (occurrence: None)
  Receive Date: 20240410
  Receipt Date: 20240410
  Transmission Date: 20240716
  Serious: Yes (Death)
  Sender: FDA-Public Use
  Company Number: 2021A435423

PATIENT
  Age: 88 Year
  Sex: Male

DRUGS (6)
  1. PULMICORT TURBUHALER [Suspect]
     Active Substance: BUDESONIDE
     Indication: Asthma
     Dosage: 200UG/INHAL EVERY SIX HOURS
     Route: 055
     Dates: end: 20210513
  2. ATROVENT HFA [Concomitant]
     Active Substance: IPRATROPIUM BROMIDE
     Dosage: 20.0UG UNKNOWN
  3. ASPIRIN [Concomitant]
     Active Substance: ASPIRIN
     Dosage: 100.0MG UNKNOWN
  4. TAMBOCOR CR [Concomitant]
     Dosage: 100.0MG UNKNOWN
  5. LANSOPRAZOLE [Concomitant]
     Active Substance: LANSOPRAZOLE
     Dosage: 15.0MG UNKNOWN
  6. UROMAX [Concomitant]
     Dosage: 0.4MG UNKNOWN

REACTIONS (1)
  - Cardiac failure [Fatal]
